FAERS Safety Report 21990850 (Version 1)
Quarter: 2023Q1

REPORT INFORMATION
  Report Type: Spontaneous
  Country: US (occurrence: None)
  Receive Date: 20230213
  Receipt Date: 20230213
  Transmission Date: 20230418
  Serious: Yes (Death, Hospitalization)
  Sender: FDA-Public Use
  Company Number: None

PATIENT
  Age: 60 Year
  Sex: Female

DRUGS (3)
  1. ASTRAMORPH PF [Suspect]
     Active Substance: MORPHINE SULFATE
     Indication: Post-traumatic pain
     Dosage: OTHER QUANTITY : 1 INJECTION(S);?FREQUENCY : AS NEEDED;?
     Route: 058
  2. Once a day diabetic capsules [Concomitant]
  3. High blood pressure controllable pills [Concomitant]

REACTIONS (1)
  - Death [None]

NARRATIVE: CASE EVENT DATE: 20161119
